FAERS Safety Report 6018021-4 (Version None)
Quarter: 2008Q4

REPORT INFORMATION
  Report Type: 
  Country: None (occurrence: None)
  Receive Date: 20081223
  Receipt Date: 20081217
  Transmission Date: 20090506
  Serious: Yes (Hospitalization)
  Sender: FDA-Public Use
  Company Number: B0551196A

PATIENT

DRUGS (1)
  1. CLAMOXYL [Suspect]
     Indication: DRUG USE FOR UNKNOWN INDICATION
     Dosage: 50MGML UNKNOWN
     Route: 048
     Dates: start: 20081201

REACTIONS (2)
  - ANGIOEDEMA [None]
  - PRODUCT QUALITY ISSUE [None]
